FAERS Safety Report 24671387 (Version 1)
Quarter: 2024Q4

REPORT INFORMATION
  Report Type: Report from Study
  Country: FR (occurrence: FR)
  Receive Date: 20241127
  Receipt Date: 20241127
  Transmission Date: 20250115
  Serious: Yes (Hospitalization, Other)
  Sender: EISAI
  Company Number: FR-Eisai-EC-2024-179592

PATIENT
  Sex: Female
  Weight: 89.1 kg

DRUGS (9)
  1. HALAVEN [Suspect]
     Active Substance: ERIBULIN MESYLATE
     Indication: Breast cancer
     Dosage: UNKNOWN DOSE
     Route: 042
     Dates: start: 20241029
  2. CAPECITABINE [Suspect]
     Active Substance: CAPECITABINE
     Indication: Breast cancer
     Dosage: UNKNOWN FREQUENCY
     Route: 042
     Dates: start: 20240419, end: 20240503
  3. CAPECITABINE [Suspect]
     Active Substance: CAPECITABINE
     Route: 042
     Dates: start: 20240510, end: 20240524
  4. DEXERYL  [CHLORPHENAMINE MALEATE;DEXTROMETHORPHAN HYDROBROMIDE;GUAIFEN [Concomitant]
     Dates: start: 20240419
  5. SODIUM BICARBONATE [Concomitant]
     Active Substance: SODIUM BICARBONATE
     Dates: start: 20240419
  6. IMODIUM [Concomitant]
     Active Substance: LOPERAMIDE HYDROCHLORIDE
     Dates: start: 20240419
  7. PRIMPERAN [Concomitant]
     Active Substance: METOCLOPRAMIDE HYDROCHLORIDE
     Dates: start: 20240419
  8. SMECTA [Concomitant]
     Active Substance: MONTMORILLONITE
     Dates: start: 20240419
  9. RACECADOTRIL [Concomitant]
     Active Substance: RACECADOTRIL
     Dates: start: 20240419

REACTIONS (2)
  - Bone marrow failure [Not Recovered/Not Resolved]
  - Sepsis [Not Recovered/Not Resolved]

NARRATIVE: CASE EVENT DATE: 20241108
